FAERS Safety Report 15699597 (Version 2)
Quarter: 2018Q4

REPORT INFORMATION
  Report Type: Spontaneous
  Country: CA (occurrence: CA)
  Receive Date: 20181207
  Receipt Date: 20181212
  Transmission Date: 20190205
  Serious: Yes (Other)
  Sender: FDA-Public Use
  Company Number: CA-JNJFOC-20181200805

PATIENT
  Sex: Female

DRUGS (1)
  1. SIMPONI [Suspect]
     Active Substance: GOLIMUMAB
     Indication: PRODUCT USED FOR UNKNOWN INDICATION
     Route: 065
     Dates: end: 20181020

REACTIONS (4)
  - Drug effect decreased [Not Recovered/Not Resolved]
  - Infection [Not Recovered/Not Resolved]
  - Surgery [Unknown]
  - Rheumatoid arthritis [Not Recovered/Not Resolved]
